FAERS Safety Report 5505458-2 (Version None)
Quarter: 2007Q4

REPORT INFORMATION
  Report Type: 
  Country: None (occurrence: None)
  Receive Date: 20071030
  Receipt Date: 20070706
  Transmission Date: 20080405
  Serious: No
  Sender: FDA-Public Use
  Company Number: 265337

PATIENT
  Age: 49 Year
  Sex: Female

DRUGS (2)
  1. LEVEMIR [Suspect]
     Indication: INSULIN-REQUIRING TYPE II DIABETES MELLITUS
     Dosage: 20 IU, QD, SUBCUTANEOUS ; 35 IU, QD
     Route: 058
     Dates: start: 20070617, end: 20070701
  2. LEVEMIR [Suspect]
     Indication: INSULIN-REQUIRING TYPE II DIABETES MELLITUS
     Dosage: 20 IU, QD, SUBCUTANEOUS ; 35 IU, QD
     Route: 058
     Dates: start: 20070701

REACTIONS (2)
  - DEVICE FAILURE [None]
  - INJECTION SITE PAIN [None]
